FAERS Safety Report 20617546 (Version 1)
Quarter: 2022Q1

REPORT INFORMATION
  Report Type: Spontaneous
  Country: JP (occurrence: JP)
  Receive Date: 20220321
  Receipt Date: 20220321
  Transmission Date: 20220423
  Serious: Yes (Death)
  Sender: FDA-Public Use
  Company Number: JP-HQ SPECIALTY-JP-2022INT000057

PATIENT

DRUGS (8)
  1. CISPLATIN [Suspect]
     Active Substance: CISPLATIN
     Indication: Non-small cell lung cancer
     Dosage: 80 MG/M2 (CYCLE 1, DAY 1)
     Route: 042
  2. CISPLATIN [Suspect]
     Active Substance: CISPLATIN
     Dosage: 80 MG/M2 (CYCLE 2, DAY 1)
     Route: 042
  3. CISPLATIN [Suspect]
     Active Substance: CISPLATIN
     Dosage: 80 MG/M2 (CYCLE 3, DAY 1)
     Route: 042
  4. CISPLATIN [Suspect]
     Active Substance: CISPLATIN
     Dosage: 80 MG/M2 (CYCLE 4, DAY 1)
     Route: 042
  5. VINORELBINE [Suspect]
     Active Substance: VINORELBINE TARTRATE
     Indication: Non-small cell lung cancer
     Dosage: 25 MG/M2 (CYCLE 1, DAYS 1 AND 8)
     Route: 042
  6. VINORELBINE [Suspect]
     Active Substance: VINORELBINE TARTRATE
     Dosage: 25 MG/M2 (CYCLE 2, DAYS 1 AND 8)
     Route: 042
  7. VINORELBINE [Suspect]
     Active Substance: VINORELBINE TARTRATE
     Dosage: 25 MG/M2 (CYCLE 3, DAYS 1 AND 8)
     Route: 042
  8. VINORELBINE [Suspect]
     Active Substance: VINORELBINE TARTRATE
     Dosage: 25 MG/M2 (CYCLE 4, DAYS 1 AND 8)

REACTIONS (1)
  - Completed suicide [Fatal]
